FAERS Safety Report 5134235-X (Version None)
Quarter: 2006Q4

REPORT INFORMATION
  Report Type: 
  Country: None (occurrence: None)
  Receive Date: 20061019
  Receipt Date: 20061009
  Transmission Date: 20070319
  Serious: No
  Sender: FDA-Public Use
  Company Number: 2006110936

PATIENT
  Age: 47 Year
  Sex: Female

DRUGS (4)
  1. SPIRONOLACTONE [Suspect]
  2. PLAVIX [Concomitant]
  3. VYTORIN [Concomitant]
  4. LASIX [Concomitant]

REACTIONS (1)
  - NO ADVERSE EFFECT [None]
